FAERS Safety Report 11895005 (Version 1)
Quarter: 2016Q1

REPORT INFORMATION
  Report Type: Spontaneous
  Country: US (occurrence: None)
  Receive Date: 20160106
  Receipt Date: 20160106
  Transmission Date: 20160526
  Serious: Yes (Disabling, Other)
  Sender: FDA-Public Use
  Company Number: None

PATIENT
  Age: 46 Year
  Sex: Female
  Weight: 31.3 kg

DRUGS (7)
  1. SODIUM CHLORIDE. [Suspect]
     Active Substance: SODIUM CHLORIDE
     Indication: HYPOKALAEMIA
     Dates: start: 20151218, end: 20151219
  2. KOLOREX HERBAL ANTI FUNGAL ( HOROPITO EXTRACT) [Concomitant]
  3. LEVAQUIN [Concomitant]
     Active Substance: LEVOFLOXACIN
  4. CLONAZAPAM [Concomitant]
     Active Substance: CLONAZEPAM
  5. PEARLS PROBIOTIC SENNA TEA [Concomitant]
  6. KOLOREX TEA ( HOROWITZ, ANISE, PEPPERMINT) [Concomitant]
  7. FLU CONSOLE [Concomitant]

REACTIONS (11)
  - Oedema peripheral [None]
  - Respiratory distress [None]
  - Infusion site extravasation [None]
  - Energy increased [None]
  - Pneumonia [None]
  - Mental status changes [None]
  - Product contamination physical [None]
  - Drug administration error [None]
  - Weight decreased [None]
  - Bronchitis [None]
  - Urine ketone body present [None]

NARRATIVE: CASE EVENT DATE: 20151218
